FAERS Safety Report 4397280-8 (Version None)
Quarter: 2004Q3

REPORT INFORMATION
  Report Type: 
  Country: None (occurrence: None)
  Receive Date: 20040714
  Receipt Date: 20040706
  Transmission Date: 20050211
  Serious: Yes (Hospitalization)
  Sender: FDA-Public Use
  Company Number: JP-MERCK-0407USA00796

PATIENT
  Age: 66 Year
  Sex: Female

DRUGS (4)
  1. PEPCID RPD [Suspect]
     Route: 048
     Dates: start: 20030228, end: 20031219
  2. NITRENDIPINE [Suspect]
     Route: 048
     Dates: start: 20030228, end: 20031219
  3. PHENYTOIN [Suspect]
     Route: 048
     Dates: start: 20030228, end: 20031219
  4. PRAVASTATIN SODIUM [Suspect]
     Route: 048
     Dates: start: 20030228, end: 20031219

REACTIONS (3)
  - ALANINE AMINOTRANSFERASE INCREASED [None]
  - LIVER DISORDER [None]
  - LYMPHOCYTE STIMULATION TEST POSITIVE [None]
